FAERS Safety Report 21753508 (Version 1)
Quarter: 2022Q4

REPORT INFORMATION
  Report Type: Report from Study
  Country: DE (occurrence: DE)
  Receive Date: 20221220
  Receipt Date: 20221220
  Transmission Date: 20230113
  Serious: Yes (Hospitalization, Other)
  Sender: FDA-Public Use
  Company Number: DE-LEO Pharma-347742

PATIENT
  Sex: Male

DRUGS (17)
  1. BRODALUMAB [Suspect]
     Active Substance: BRODALUMAB
     Indication: Psoriasis
     Dosage: 210 MILLIGRAM FOR PSORIASIS EVERY 2 WEEK
     Route: 058
     Dates: start: 20201127, end: 20220530
  2. VALSARTAN [Concomitant]
     Active Substance: VALSARTAN
     Indication: Hypertension
     Dosage: UNK (160 MG,1 IN 1 D)
     Route: 048
     Dates: start: 20100101
  3. FEBUXOSTAT [Concomitant]
     Active Substance: FEBUXOSTAT
     Indication: Hyperuricaemia
     Dosage: UNK (80 MG)
     Route: 048
     Dates: start: 20220901
  4. LERCANIDIPINE HYDROCHLORIDE [Concomitant]
     Active Substance: LERCANIDIPINE HYDROCHLORIDE
     Indication: Hypertension
     Dosage: LERCANIDIPIN
     Dates: start: 20220501
  5. ETORICOXIB [Concomitant]
     Active Substance: ETORICOXIB
     Indication: Psoriatic arthropathy
     Dates: start: 20220901
  6. ACETAMINOPHEN\CAFFEINE\PROPYPHENAZONE [Concomitant]
     Active Substance: ACETAMINOPHEN\CAFFEINE\PROPYPHENAZONE
     Indication: Product used for unknown indication
     Dosage: NOVALGIN, 500 MG,3 IN 1 D
  7. HYDROCHLOROTHIAZIDE [Concomitant]
     Active Substance: HYDROCHLOROTHIAZIDE
     Indication: Hypertension
     Dosage: 25 MILLIEQUIVALENTS,1 IN 1 D
     Route: 048
     Dates: start: 20210501
  8. ELIQUIS [Concomitant]
     Active Substance: APIXABAN
     Indication: Anticoagulant therapy
     Dosage: (5 MG,2 IN 1 D)
     Dates: start: 20220201
  9. METFORMIN [Concomitant]
     Active Substance: METFORMIN HYDROCHLORIDE
     Indication: Diabetes mellitus
     Dosage: (1000 MG,2 IN 1 D)
     Dates: start: 20100101
  10. ACTRAPID [Concomitant]
     Active Substance: INSULIN HUMAN
     Indication: Diabetes mellitus
     Dosage: DOSAGE ACCORDING TO BLOOD GLUCOSE LEVEL
     Dates: start: 20200501
  11. ROSUVASTATIN CALCIUM [Concomitant]
     Active Substance: ROSUVASTATIN CALCIUM
     Indication: Hypercholesterolaemia
     Dosage: ROSUVASTATIN
     Dates: start: 20200501
  12. INSULIN DEGLUDEC [Concomitant]
     Active Substance: INSULIN DEGLUDEC
     Indication: Diabetes mellitus
     Dosage: INSULIN (TRESIBA)
     Dates: start: 20220501
  13. ALLOPURINOL [Concomitant]
     Active Substance: ALLOPURINOL
     Indication: Product used for unknown indication
     Dosage: (300 MG,1 IN 1 D)
  14. TORSEMIDE [Concomitant]
     Active Substance: TORSEMIDE
     Indication: Product used for unknown indication
  15. METOPROLOL [Concomitant]
     Active Substance: METOPROLOL
     Indication: Hypertension
     Dosage: (47.5 MG,1 IN 1 D)
     Dates: start: 202005
  16. METOPROLOL [Concomitant]
     Active Substance: METOPROLOL
     Dosage: (95 MG,1 IN 1 D)
     Dates: start: 20220501
  17. PANTOPRAZOLE SODIUM [Concomitant]
     Active Substance: PANTOPRAZOLE SODIUM
     Indication: Prophylaxis against gastrointestinal ulcer
     Dosage: PANTOPRAZOL

REACTIONS (1)
  - Psoriatic arthropathy [Not Recovered/Not Resolved]
